FAERS Safety Report 23247851 (Version 6)
Quarter: 2024Q1

REPORT INFORMATION
  Report Type: Spontaneous
  Country: GB (occurrence: GB)
  Receive Date: 20231130
  Receipt Date: 20240326
  Transmission Date: 20240409
  Serious: Yes (Hospitalization, Other)
  Sender: FDA-Public Use
  Company Number: GB-MYLANLABS-2023M1083191

PATIENT
  Age: 45 Year
  Sex: Female

DRUGS (1)
  1. CLOZARIL [Suspect]
     Active Substance: CLOZAPINE
     Indication: Schizophrenia
     Dosage: UNK
     Route: 048
     Dates: start: 20090527

REACTIONS (8)
  - Schizophrenia [Unknown]
  - Differential white blood cell count abnormal [Unknown]
  - Thrombocytosis [Not Recovered/Not Resolved]
  - Eosinophil count decreased [Unknown]
  - Weight decreased [Unknown]
  - Abdominal distension [Unknown]
  - Anaemia [Not Recovered/Not Resolved]
  - White blood cell count increased [Unknown]

NARRATIVE: CASE EVENT DATE: 20230804
